FAERS Safety Report 8193916-4 (Version None)
Quarter: 2012Q1

REPORT INFORMATION
  Report Type: 
  Country: None (occurrence: None)
  Receive Date: 20120308
  Receipt Date: 20120301
  Transmission Date: 20120608
  Serious: Yes (Hospitalization)
  Sender: FDA-Public Use
  Company Number: US-ACTELION-A-NJ2012-61055

PATIENT

DRUGS (24)
  1. CALCIUM CHANNEL BLOCKERS [Concomitant]
  2. ZOCOR [Concomitant]
  3. FOSAMAX [Concomitant]
  4. NOVOLOG [Concomitant]
  5. OMEPRAZOLE [Concomitant]
  6. LASIX [Concomitant]
  7. CALCIUM [Concomitant]
  8. VENTAVIS [Suspect]
     Dosage: UNK
     Route: 055
     Dates: start: 20120201
  9. FISH OIL [Concomitant]
  10. VENTAVIS [Suspect]
     Indication: PULMONARY ARTERIAL HYPERTENSION
     Dosage: UNK
     Route: 055
     Dates: start: 20110922, end: 20120201
  11. ADCIRCA [Concomitant]
  12. LEVEMIR [Concomitant]
  13. LETAIRIS [Concomitant]
  14. FERROUS SULFATE TAB [Concomitant]
  15. ENALAPRIL MALEATE [Concomitant]
  16. QUININE SULFATE [Concomitant]
  17. ZOLOFT [Concomitant]
  18. ASPIRIN [Concomitant]
  19. HYDRALAZINE HCL [Concomitant]
  20. ARANESP [Concomitant]
  21. SYNTHROID [Concomitant]
  22. METOPROLOL SUCCINATE [Concomitant]
  23. LORATADINE [Concomitant]
  24. TYLENOL [Concomitant]

REACTIONS (21)
  - VOMITING [None]
  - HYPOALBUMINAEMIA [None]
  - HEPATIC STEATOSIS [None]
  - DECREASED APPETITE [None]
  - POLYPECTOMY [None]
  - HERPES ZOSTER [None]
  - ACUTE PRERENAL FAILURE [None]
  - URINARY TRACT INFECTION [None]
  - FALL [None]
  - COLONIC POLYP [None]
  - DIVERTICULITIS [None]
  - ABDOMINAL PAIN [None]
  - WEIGHT DECREASED [None]
  - CLOSTRIDIUM DIFFICILE COLITIS [None]
  - PLEURAL EFFUSION [None]
  - OESOPHAGEAL CANDIDIASIS [None]
  - CARDIAC FAILURE CONGESTIVE [None]
  - DEHYDRATION [None]
  - PNEUMONIA ASPIRATION [None]
  - NAUSEA [None]
  - GENERALISED OEDEMA [None]
